FAERS Safety Report 5417510-0 (Version None)
Quarter: 2007Q3

REPORT INFORMATION
  Report Type: 
  Country: None (occurrence: None)
  Receive Date: 20070718
  Receipt Date: 20070413
  Transmission Date: 20080115
  Serious: Yes (Other)
  Sender: FDA-Public Use
  Company Number: 2007030072

PATIENT
  Sex: Female

DRUGS (2)
  1. CELEBREX [Suspect]
     Indication: ARTHRITIS
     Dosage: 400 MG (1 D), ORAL
     Route: 048
     Dates: start: 20030613
  2. CELEBREX [Suspect]
     Indication: PAIN
     Dosage: 400 MG (1 D), ORAL
     Route: 048
     Dates: start: 20030613

REACTIONS (1)
  - MYOCARDIAL INFARCTION [None]
